FAERS Safety Report 6773371-9 (Version None)
Quarter: 2010Q2

REPORT INFORMATION
  Report Type: 
  Country: None (occurrence: None)
  Receive Date: 20100614
  Receipt Date: 20100604
  Transmission Date: 20101027
  Serious: Yes (Other)
  Sender: FDA-Public Use
  Company Number: 2010SP019835

PATIENT
  Age: 44 Year
  Sex: Male
  Weight: 92.9874 kg

DRUGS (6)
  1. CLARITIN [Suspect]
     Indication: COUGH
     Dosage: 5 MG; Q12H; PO
     Route: 048
     Dates: start: 20100403, end: 20100406
  2. CLARITIN [Suspect]
     Indication: HYPERSENSITIVITY
     Dosage: 5 MG; Q12H; PO
     Route: 048
     Dates: start: 20100403, end: 20100406
  3. CLARITIN [Suspect]
     Indication: RHINORRHOEA
     Dosage: 5 MG; Q12H; PO
     Route: 048
     Dates: start: 20100403, end: 20100406
  4. CLARITIN [Suspect]
     Indication: SNEEZING
     Dosage: 5 MG; Q12H; PO
     Route: 048
     Dates: start: 20100403, end: 20100406
  5. CLARITIN [Suspect]
     Indication: THROAT IRRITATION
     Dosage: 5 MG; Q12H; PO
     Route: 048
     Dates: start: 20100403, end: 20100406
  6. NORVASC [Concomitant]

REACTIONS (5)
  - DRY MOUTH [None]
  - GLOSSODYNIA [None]
  - PHARYNGEAL OEDEMA [None]
  - SWOLLEN TONGUE [None]
  - THROAT IRRITATION [None]
